FAERS Safety Report 17468312 (Version 2)
Quarter: 2020Q1

REPORT INFORMATION
  Report Type: Spontaneous
  Country: ES (occurrence: ES)
  Receive Date: 20200227
  Receipt Date: 20200302
  Transmission Date: 20200409
  Serious: Yes (Hospitalization, Other)
  Sender: FDA-Public Use
  Company Number: ES-PFIZER INC-2020081399

PATIENT
  Age: 51 Year
  Sex: Female

DRUGS (4)
  1. FLUDARABINE PHOSPHATE. [Suspect]
     Active Substance: FLUDARABINE PHOSPHATE
     Indication: ACUTE MYELOID LEUKAEMIA
     Dosage: UNK
  2. CYTARABINE. [Suspect]
     Active Substance: CYTARABINE
     Indication: ACUTE MYELOID LEUKAEMIA
     Dosage: UNK
  3. IDARUBICIN HCL [Suspect]
     Active Substance: IDARUBICIN HYDROCHLORIDE
     Indication: ACUTE MYELOID LEUKAEMIA
     Dosage: UNK
  4. GRANULOCYTE COLONY STIMULATING FACTOR [Suspect]
     Active Substance: GRANULOCYTE COLONY-STIMULATING FACTOR NOS
     Indication: ACUTE MYELOID LEUKAEMIA
     Dosage: UNK

REACTIONS (8)
  - Ventricular hypokinesia [Recovering/Resolving]
  - Cardiotoxicity [Recovering/Resolving]
  - Pericardial effusion [Recovering/Resolving]
  - Dyspnoea [Recovering/Resolving]
  - Cardiac failure acute [Recovering/Resolving]
  - Thrombosis [Recovering/Resolving]
  - Orthopnoea [Recovering/Resolving]
  - Pleural effusion [Recovering/Resolving]
